FAERS Safety Report 7286367-8 (Version None)
Quarter: 2011Q1

REPORT INFORMATION
  Report Type: 
  Country: None (occurrence: None)
  Receive Date: 20110210
  Receipt Date: 20110207
  Transmission Date: 20110831
  Serious: Yes (Hospitalization, Other)
  Sender: FDA-Public Use
  Company Number: US-ROXANE LABORATORIES, INC.-2011-RO-00154RO

PATIENT
  Age: 88 Year
  Sex: Female

DRUGS (3)
  1. FLECAINIDE [Suspect]
     Indication: ATRIAL FIBRILLATION
     Dosage: 200 MG
  2. ASPIRIN [Suspect]
  3. METOPROLOL XL [Suspect]
     Dosage: 200 MG

REACTIONS (5)
  - RENAL FAILURE ACUTE [None]
  - TOXICITY TO VARIOUS AGENTS [None]
  - DEVICE MALFUNCTION [None]
  - HYPERKALAEMIA [None]
  - DEHYDRATION [None]
